FAERS Safety Report 24970411 (Version 2)
Quarter: 2025Q1

REPORT INFORMATION
  Report Type: Spontaneous
  Country: PL (occurrence: PL)
  Receive Date: 20250214
  Receipt Date: 20250304
  Transmission Date: 20250408
  Serious: Yes (Hospitalization, Other)
  Sender: Kenvue
  Company Number: PL-RBHC-20-25-POL-RB-0001186

PATIENT

DRUGS (2)
  1. ACETAMINOPHEN [Suspect]
     Active Substance: ACETAMINOPHEN
     Indication: Product used for unknown indication
     Route: 065
  2. IBUPROFEN [Suspect]
     Active Substance: IBUPROFEN
     Indication: Product used for unknown indication
     Route: 065

REACTIONS (6)
  - Acute hepatic failure [Recovered/Resolved]
  - Dermatitis exfoliative generalised [Recovered/Resolved]
  - Pneumonia [Recovered/Resolved]
  - Transfusion-related acute lung injury [Recovered/Resolved]
  - Liver injury [Recovered/Resolved]
  - Respiratory failure [Recovered/Resolved]
